FAERS Safety Report 20667225 (Version 1)
Quarter: 2022Q2

REPORT INFORMATION
  Report Type: Spontaneous
  Country: US (occurrence: US)
  Receive Date: 20220404
  Receipt Date: 20220404
  Transmission Date: 20220720
  Serious: No
  Sender: FDA-Public Use
  Company Number: US-SANOFI-01035862

PATIENT
  Sex: Female

DRUGS (1)
  1. DUPIXENT [Suspect]
     Active Substance: DUPILUMAB
     Dosage: UNK
     Dates: start: 20220316

REACTIONS (2)
  - Sinusitis [Unknown]
  - Periorbital swelling [Recovering/Resolving]

NARRATIVE: CASE EVENT DATE: 20220319
